FAERS Safety Report 8325542-8 (Version None)
Quarter: 2012Q2

REPORT INFORMATION
  Report Type: 
  Country: None (occurrence: None)
  Receive Date: 20120501
  Receipt Date: 20120418
  Transmission Date: 20120825
  Serious: Yes (Hospitalization, Other)
  Sender: FDA-Public Use
  Company Number: CN-JNJFOC-20110107951

PATIENT
  Sex: Female

DRUGS (5)
  1. REMICADE [Suspect]
     Dosage: 3RD DOSE
     Route: 042
     Dates: start: 20110101, end: 20110101
  2. REMICADE [Suspect]
     Indication: RHEUMATOID ARTHRITIS
     Route: 042
     Dates: start: 20110127, end: 20110127
  3. REMICADE [Suspect]
     Dosage: 5 TREATMENTS
     Route: 042
     Dates: start: 20070101, end: 20070101
  4. REMICADE [Suspect]
     Dosage: 2 DOSES
     Route: 042
  5. HEXADECADROL [Concomitant]
     Indication: PREMEDICATION
     Route: 042
     Dates: start: 20110101, end: 20110101

REACTIONS (6)
  - RHEUMATOID ARTHRITIS [None]
  - HYPOAESTHESIA ORAL [None]
  - INFUSION RELATED REACTION [None]
  - PARAESTHESIA ORAL [None]
  - PRURITUS GENERALISED [None]
  - RASH ERYTHEMATOUS [None]
